FAERS Safety Report 9421866 (Version 8)
Quarter: 2014Q1

REPORT INFORMATION
  Report Type: Report from Study
  Country: CA (occurrence: CA)
  Receive Date: 20130726
  Receipt Date: 20140131
  Transmission Date: 20141002
  Serious: Yes (Other)
  Sender: FDA-Public Use
  Company Number: CA-ROCHE-1225480

PATIENT
  Age: 58 Year
  Sex: Female
  Weight: 75.7 kg

DRUGS (25)
  1. RITUXAN [Suspect]
     Indication: RHEUMATOID ARTHRITIS
     Dosage: MOST RECENT DOSE ON 23/AUG/2013
     Route: 042
     Dates: start: 20120611
  2. RITUXAN [Suspect]
     Route: 042
     Dates: start: 20130521
  3. CLINDAMYCIN [Suspect]
     Indication: GINGIVITIS
     Dosage: FOR 10 DAYS
     Route: 048
     Dates: start: 20130828
  4. DIPHENHYDRAMINE HCL [Concomitant]
     Dosage: QD
     Route: 048
     Dates: start: 20120627
  5. ACETAMINOPHEN [Concomitant]
     Dosage: QD
     Route: 048
     Dates: start: 20120627
  6. METHYLPREDNISOLONE [Concomitant]
     Dosage: QD
     Route: 042
     Dates: start: 20120627, end: 20130627
  7. METHYLPREDNISOLONE [Concomitant]
     Route: 042
     Dates: start: 20130823
  8. METHYLPREDNISOLONE [Concomitant]
     Route: 042
     Dates: start: 20130506
  9. METHOTREXATE [Concomitant]
  10. VITAMIN B12 [Concomitant]
  11. RABEPRAZOLE [Concomitant]
  12. CITALOPRAM [Concomitant]
  13. GABAPENTIN [Concomitant]
  14. GARAMYCIN EYE DROPS [Concomitant]
  15. SOFRAMYCIN EYE/EAR [Concomitant]
  16. LORAZEPAM [Concomitant]
  17. RISEDRONATE [Concomitant]
  18. CLOTRIMADERM [Concomitant]
  19. FOLIC ACID [Concomitant]
  20. FLOVENT [Concomitant]
  21. COUMADIN [Concomitant]
  22. SALVENT [Concomitant]
  23. HYDROMORPHONE [Concomitant]
  24. HYDROMORPH CONTIN [Concomitant]
  25. BUDESONIDE [Concomitant]

REACTIONS (25)
  - Hand deformity [Recovering/Resolving]
  - Osteoarthritis [Not Recovered/Not Resolved]
  - Scoliosis [Not Recovered/Not Resolved]
  - Bone density abnormal [Not Recovered/Not Resolved]
  - Breast mass [Not Recovered/Not Resolved]
  - Breast pain [Not Recovered/Not Resolved]
  - Arthralgia [Not Recovered/Not Resolved]
  - Arthralgia [Not Recovered/Not Resolved]
  - Inflammation [Not Recovered/Not Resolved]
  - Pain [Not Recovered/Not Resolved]
  - Joint swelling [Not Recovered/Not Resolved]
  - Musculoskeletal pain [Not Recovered/Not Resolved]
  - Arthralgia [Not Recovered/Not Resolved]
  - Upper extremity mass [Not Recovered/Not Resolved]
  - Feeling hot [Not Recovered/Not Resolved]
  - Hypotension [Unknown]
  - Gingivitis [Recovering/Resolving]
  - Nausea [Unknown]
  - Diarrhoea [Unknown]
  - Atlantoaxial instability [Unknown]
  - Groin pain [Not Recovered/Not Resolved]
  - Gait disturbance [Not Recovered/Not Resolved]
  - Pain in extremity [Unknown]
  - Bone pain [Unknown]
  - Back pain [Unknown]
